FAERS Safety Report 12647162 (Version 1)
Quarter: 2016Q3

REPORT INFORMATION
  Report Type: Spontaneous
  Country: US (occurrence: None)
  Receive Date: 20160811
  Receipt Date: 20160811
  Transmission Date: 20161109
  Serious: Yes (Life-Threatening, Disabling, Other)
  Sender: FDA-Public Use
  Company Number: None

PATIENT
  Age: 49 Year
  Sex: Female
  Weight: 63.5 kg

DRUGS (1)
  1. PROPRANOLOL, 80 MG [Suspect]
     Active Substance: PROPRANOLOL\PROPRANOLOL HYDROCHLORIDE
     Indication: HYPERTENSION
     Route: 048

REACTIONS (7)
  - Transient ischaemic attack [None]
  - Loss of consciousness [None]
  - Dizziness [None]
  - Headache [None]
  - Nausea [None]
  - Hypoaesthesia [None]
  - Craniocerebral injury [None]

NARRATIVE: CASE EVENT DATE: 20160809
